FAERS Safety Report 24705502 (Version 1)
Quarter: 2024Q4

REPORT INFORMATION
  Report Type: Spontaneous
  Country: FR (occurrence: FR)
  Receive Date: 20241206
  Receipt Date: 20241206
  Transmission Date: 20250115
  Serious: Yes (Hospitalization)
  Sender: RANBAXY
  Company Number: FR-SUN PHARMACEUTICAL INDUSTRIES LTD-2024RR-483180

PATIENT
  Age: 67 Year
  Sex: Female

DRUGS (3)
  1. AZITHROMYCIN [Suspect]
     Active Substance: AZITHROMYCIN
     Indication: Pneumonia pseudomonal
     Dosage: 250MG MONDAY, WEDNESDAY AND FRIDAY
     Route: 048
  2. TEZSPIRE [Suspect]
     Active Substance: TEZEPELUMAB-EKKO
     Indication: Asthma
     Dosage: 210 MILLIGRAM, 1DOSE/4WEEKS
     Route: 058
     Dates: start: 202309
  3. HYDROCORTISONE [Suspect]
     Active Substance: HYDROCORTISONE
     Indication: Asthma
     Dosage: 10MG 2/JR LC
     Route: 048

REACTIONS (3)
  - Arthralgia [Not Recovered/Not Resolved]
  - Pneumonia pseudomonal [Recovering/Resolving]
  - Condition aggravated [Not Recovered/Not Resolved]

NARRATIVE: CASE EVENT DATE: 20240801
